FAERS Safety Report 7896534-8 (Version None)
Quarter: 2011Q4

REPORT INFORMATION
  Report Type: 
  Country: None (occurrence: None)
  Receive Date: 20111106
  Receipt Date: 20111101
  Transmission Date: 20120403
  Serious: No
  Sender: FDA-Public Use
  Company Number: US-AMGEN-USASP2011043477

PATIENT
  Age: 48 Year
  Sex: Female

DRUGS (1)
  1. ENBREL [Suspect]
     Indication: RHEUMATOID ARTHRITIS
     Dosage: 50 MG, QWK
     Dates: start: 20110514

REACTIONS (12)
  - INJECTION SITE PRURITUS [None]
  - INJECTION SITE SCAB [None]
  - INJECTION SITE SWELLING [None]
  - INSOMNIA [None]
  - INJECTION SITE HAEMATOMA [None]
  - MUSCULOSKELETAL PAIN [None]
  - PAIN IN EXTREMITY [None]
  - OEDEMA PERIPHERAL [None]
  - INJECTION SITE EXTRAVASATION [None]
  - CYST [None]
  - HAND DEFORMITY [None]
  - BACK PAIN [None]
